FAERS Safety Report 15660252 (Version 1)
Quarter: 2018Q4

REPORT INFORMATION
  Report Type: Spontaneous
  Country: BE (occurrence: BE)
  Receive Date: 20181127
  Receipt Date: 20181127
  Transmission Date: 20190205
  Serious: Yes (Other)
  Sender: FDA-Public Use
  Company Number: BE-009507513-1811BEL010031

PATIENT
  Sex: Female

DRUGS (1)
  1. IMPLANON [Suspect]
     Active Substance: ETONOGESTREL
     Dosage: 1 IMPLANT AT LEFT ARM
     Route: 059
     Dates: start: 20181113, end: 20181122

REACTIONS (5)
  - Wound complication [Unknown]
  - Implant site pain [Unknown]
  - Device expulsion [Unknown]
  - Implant site infection [Unknown]
  - Wound infection [Unknown]

NARRATIVE: CASE EVENT DATE: 20181122
